FAERS Safety Report 4536173-X (Version None)
Quarter: 2004Q4

REPORT INFORMATION
  Report Type: 
  Country: None (occurrence: None)
  Receive Date: 20041223
  Receipt Date: 20040930
  Transmission Date: 20050328
  Serious: Yes (Hospitalization)
  Sender: FDA-Public Use
  Company Number: US-GLAXOSMITHKLINE-A0527957A

PATIENT
  Age: 93 Year
  Sex: Female
  Weight: 55.9 kg

DRUGS (3)
  1. PAXIL [Suspect]
     Indication: DEPRESSION
     Dosage: 25MG PER DAY
     Route: 048
     Dates: start: 20040515, end: 20041018
  2. MEGACE [Suspect]
  3. ZANTAC [Concomitant]

REACTIONS (27)
  - ASTHENIA [None]
  - BLOOD SODIUM DECREASED [None]
  - CONFUSIONAL STATE [None]
  - DEPRESSED LEVEL OF CONSCIOUSNESS [None]
  - DISORIENTATION [None]
  - DIZZINESS [None]
  - DRY MOUTH [None]
  - ELECTROLYTE IMBALANCE [None]
  - FALL [None]
  - FATIGUE [None]
  - HYPOAESTHESIA [None]
  - INCOHERENT [None]
  - INCONTINENCE [None]
  - MENTAL DISORDER [None]
  - MUSCULOSKELETAL DISORDER [None]
  - NAUSEA [None]
  - NERVOUSNESS [None]
  - PARAESTHESIA [None]
  - PRURITUS [None]
  - RASH [None]
  - RENAL DISORDER [None]
  - RENAL IMPAIRMENT [None]
  - SOMNOLENCE [None]
  - STUPOR [None]
  - TREMOR [None]
  - WEIGHT DECREASED [None]
  - WEIGHT INCREASED [None]
